FAERS Safety Report 7844631 (Version 5)
Quarter: 2013Q3

REPORT INFORMATION
  Report Type: Spontaneous
  Country: AU (occurrence: AU)
  Receive Date: 20110307
  Receipt Date: 20130927
  Transmission Date: 20140515
  Serious: Yes (Hospitalization, Other)
  Sender: FDA-Public Use
  Company Number: AU-ASTRAZENECA-2011SE10663

PATIENT
  Age: 79 Year
  Sex: Female

DRUGS (1)
  1. ARIMIDEX [Suspect]
     Route: 048
     Dates: start: 20050601

REACTIONS (9)
  - Skin cancer [Recovering/Resolving]
  - Phantom pain [Not Recovered/Not Resolved]
  - Dysphonia [Unknown]
  - Respiratory disorder [Unknown]
  - Asthma [Unknown]
  - Benign neoplasm of thyroid gland [Unknown]
  - Arthralgia [Not Recovered/Not Resolved]
  - Hot flush [Not Recovered/Not Resolved]
  - Joint stiffness [Not Recovered/Not Resolved]
